FAERS Safety Report 20690416 (Version 1)
Quarter: 2022Q2

REPORT INFORMATION
  Report Type: Spontaneous
  Country: LU (occurrence: None)
  Receive Date: 20220408
  Receipt Date: 20220408
  Transmission Date: 20220720
  Serious: Yes (Other)
  Sender: FDA-Public Use
  Company Number: 2022A133371

PATIENT
  Age: 12 Year
  Sex: Male
  Weight: 37 kg

DRUGS (3)
  1. SYMBICORT [Suspect]
     Active Substance: BUDESONIDE\FORMOTEROL FUMARATE DIHYDRATE
     Dosage: 160 ?G/4.5 ?G
     Route: 065
     Dates: start: 20210201, end: 20220312
  2. SINGULAIR [Suspect]
     Active Substance: MONTELUKAST SODIUM
     Dosage: IN THE EVENING
     Route: 065
     Dates: start: 20210201, end: 20220312
  3. AERIUS (DESLORATADINE) [Suspect]
     Active Substance: DESLORATADINE
     Route: 065
     Dates: start: 20210801, end: 20220314

REACTIONS (4)
  - Disorientation [Unknown]
  - Personality change [Unknown]
  - Personality change [Unknown]
  - Somnolence [Unknown]

NARRATIVE: CASE EVENT DATE: 20210801
